FAERS Safety Report 7263329-8 (Version None)
Quarter: 2011Q1

REPORT INFORMATION
  Report Type: 
  Country: None (occurrence: None)
  Receive Date: 20110130
  Receipt Date: 20100930
  Transmission Date: 20110831
  Serious: No
  Sender: FDA-Public Use
  Company Number: US-ABBOTT-10P-163-0675948-00

PATIENT
  Sex: Female

DRUGS (2)
  1. HUMIRA [Suspect]
     Dates: start: 20100901
  2. HUMIRA [Suspect]
     Indication: CROHN'S DISEASE
     Dosage: PATIENT WAS PRESCRIBED 40 MILLIGRAMS, BUT TOOK 80 MILLIGRAMS INSTEAD.
     Dates: start: 20100821, end: 20100904

REACTIONS (1)
  - INCORRECT DOSE ADMINISTERED [None]
